FAERS Safety Report 25224312 (Version 1)
Quarter: 2025Q2

REPORT INFORMATION
  Report Type: Spontaneous
  Country: US (occurrence: None)
  Receive Date: 20250421
  Receipt Date: 20250421
  Transmission Date: 20250717
  Serious: Yes (Hospitalization, Other)
  Sender: FDA-CTU
  Company Number: None

PATIENT
  Age: 38 Year
  Sex: Female
  Weight: 81 kg

DRUGS (8)
  1. LINEZOLID [Suspect]
     Active Substance: LINEZOLID
     Indication: Septic shock
     Route: 042
  2. LINEZOLID [Suspect]
     Active Substance: LINEZOLID
     Indication: Cardiogenic shock
  3. OCREVUS [Suspect]
     Active Substance: OCRELIZUMAB
  4. wound vac or wet to dry dressings [Concomitant]
  5. Entrapen [Concomitant]
  6. JP drain [Concomitant]
  7. prozac oxycodeine [Concomitant]
  8. TYLENOL [Concomitant]
     Active Substance: ACETAMINOPHEN

REACTIONS (4)
  - Neutropenia [None]
  - Enteritis [None]
  - Abdominal abscess [None]
  - Pleural effusion [None]

NARRATIVE: CASE EVENT DATE: 20250305
